FAERS Safety Report 12388641 (Version 1)
Quarter: 2016Q2

REPORT INFORMATION
  Report Type: Spontaneous
  Country: US (occurrence: None)
  Receive Date: 20160519
  Receipt Date: 20160519
  Transmission Date: 20160815
  Serious: Yes (Other)
  Sender: FDA-Public Use
  Company Number: None

PATIENT
  Age: 15 Year
  Sex: Male
  Weight: 68.04 kg

DRUGS (1)
  1. EPIDUO FORTE [Suspect]
     Active Substance: ADAPALENE\BENZOYL PEROXIDE
     Indication: ACNE
     Dosage: 1 ONE BOTTLE WAS PER ONCE A DAY APPLIED TO A SURFACE, USUALLY THE SKIN
     Route: 061
     Dates: start: 20160515, end: 20160516

REACTIONS (3)
  - Blister [None]
  - Sunburn [None]
  - Burns third degree [None]

NARRATIVE: CASE EVENT DATE: 20160516
